FAERS Safety Report 23679558 (Version 7)
Quarter: 2024Q3

REPORT INFORMATION
  Report Type: Spontaneous
  Country: US (occurrence: US)
  Receive Date: 20240327
  Receipt Date: 20240925
  Transmission Date: 20241016
  Serious: Yes (Hospitalization, Other)
  Sender: BLUEPRINT MEDICINES
  Company Number: US-Blueprint Medicines Corporation-2893

PATIENT
  Sex: Male

DRUGS (5)
  1. AYVAKIT [Suspect]
     Active Substance: AVAPRITINIB
     Indication: Brain neoplasm malignant
     Dosage: 200MG (EVEN DAYS), 250MG  (ODD DAYS)
     Route: 065
     Dates: start: 20221003
  2. AYVAKIT [Suspect]
     Active Substance: AVAPRITINIB
     Indication: Sarcoma
     Dosage: 200MG (EVEN DAYS), 250MG  (ODD DAYS)
     Route: 065
     Dates: start: 20221003
  3. AYVAKIT [Suspect]
     Active Substance: AVAPRITINIB
     Route: 065
  4. AYVAKIT [Suspect]
     Active Substance: AVAPRITINIB
     Route: 065
     Dates: start: 20221003
  5. MEKINIST [Suspect]
     Active Substance: TRAMETINIB DIMETHYL SULFOXIDE
     Indication: Product used for unknown indication
     Route: 065

REACTIONS (10)
  - Oedema [Unknown]
  - Surgery [Unknown]
  - Neoplasm progression [Unknown]
  - Platelet count decreased [Unknown]
  - Neutrophil count decreased [Unknown]
  - Alopecia [Unknown]
  - Acne [Unknown]
  - Influenza [Unknown]
  - Adverse drug reaction [Unknown]
  - Off label use [Unknown]
